FAERS Safety Report 21758783 (Version 1)
Quarter: 2022Q4

REPORT INFORMATION
  Report Type: Report from Study
  Country: US (occurrence: US)
  Receive Date: 20221221
  Receipt Date: 20221221
  Transmission Date: 20230113
  Serious: No
  Sender: FDA-Public Use
  Company Number: US-ABBVIE-4194650

PATIENT
  Sex: Female

DRUGS (1)
  1. RINVOQ [Suspect]
     Active Substance: UPADACITINIB
     Indication: Dermatitis atopic
     Route: 048

REACTIONS (8)
  - Oral herpes [Unknown]
  - Herpes simplex [Unknown]
  - Blister [Unknown]
  - Weight increased [Not Recovered/Not Resolved]
  - Mental impairment [Unknown]
  - Fatigue [Unknown]
  - Limb discomfort [Not Recovered/Not Resolved]
  - Eczema [Unknown]
